FAERS Safety Report 5408831-6 (Version None)
Quarter: 2007Q3

REPORT INFORMATION
  Report Type: 
  Country: None (occurrence: None)
  Receive Date: 20070808
  Receipt Date: 20070727
  Transmission Date: 20080115
  Serious: Yes (Other)
  Sender: FDA-Public Use
  Company Number: US-PFIZER INC-2007063399

PATIENT
  Sex: Male
  Weight: 100.2 kg

DRUGS (4)
  1. CHANTIX [Suspect]
     Indication: SMOKING CESSATION THERAPY
     Route: 048
     Dates: start: 20070704, end: 20070707
  2. GLUCOTROL [Concomitant]
  3. GLUCOPHAGE [Concomitant]
  4. NEURONTIN [Concomitant]

REACTIONS (1)
  - PNEUMONIA [None]
